FAERS Safety Report 5830590-3 (Version None)
Quarter: 2008Q3

REPORT INFORMATION
  Report Type: 
  Country: None (occurrence: None)
  Receive Date: 20080801
  Receipt Date: 20070803
  Transmission Date: 20090109
  Serious: No
  Sender: FDA-Public Use
  Company Number: US-BRISTOL-MYERS SQUIBB COMPANY-13868153

PATIENT

DRUGS (1)
  1. COUMADIN [Suspect]
     Route: 051

REACTIONS (2)
  - PATERNAL DRUGS AFFECTING FOETUS [None]
  - PREGNANCY [None]
